FAERS Safety Report 4378939-5 (Version None)
Quarter: 2004Q2

REPORT INFORMATION
  Report Type: 
  Country: None (occurrence: None)
  Receive Date: 20040610
  Receipt Date: 20040526
  Transmission Date: 20050107
  Serious: No
  Sender: FDA-Public Use
  Company Number: MPS1-10232

PATIENT
  Age: 17 Month
  Sex: Female
  Weight: 11.8 kg

DRUGS (1)
  1. R-HUMAN ALPHA L-IDURONIDASE [Suspect]
     Indication: MUCOPOLYSACCHARIDOSIS I
     Dosage: 100 U/KG QWK IV
     Route: 042
     Dates: start: 20040309

REACTIONS (7)
  - BLOOD PRESSURE SYSTOLIC INCREASED [None]
  - CRYING [None]
  - LOOSE STOOLS [None]
  - OXYGEN SATURATION DECREASED [None]
  - PALLOR [None]
  - PYREXIA [None]
  - TACHYCARDIA [None]
